FAERS Safety Report 22620505 (Version 1)
Quarter: 2023Q2

REPORT INFORMATION
  Report Type: Spontaneous
  Country: FR (occurrence: FR)
  Receive Date: 20230620
  Receipt Date: 20230620
  Transmission Date: 20230722
  Serious: Yes (Hospitalization)
  Sender: FDA-Public Use
  Company Number: FR-MYLANLABS-2023M1063671

PATIENT
  Age: 80 Year
  Sex: Female

DRUGS (2)
  1. PACLITAXEL [Suspect]
     Active Substance: PACLITAXEL
     Indication: Breast cancer
     Dosage: UNK
     Route: 065
  2. NOREPINEPHRINE [Concomitant]
     Active Substance: NOREPINEPHRINE
     Indication: Cardiovascular disorder
     Dosage: UNK
     Route: 065

REACTIONS (9)
  - Gastritis bacterial [Recovering/Resolving]
  - Gastrointestinal necrosis [Recovering/Resolving]
  - Pneumoperitoneum [Recovering/Resolving]
  - Gastric pneumatosis [Recovering/Resolving]
  - Haematoma [Recovering/Resolving]
  - Haemodynamic instability [Recovering/Resolving]
  - Infection [Recovering/Resolving]
  - Gastric haemorrhage [Recovering/Resolving]
  - Lactic acidosis [Recovering/Resolving]
